FAERS Safety Report 10082189 (Version 3)
Quarter: 2014Q2

REPORT INFORMATION
  Report Type: Spontaneous
  Country: US (occurrence: US)
  Receive Date: 20140416
  Receipt Date: 20140526
  Transmission Date: 20141212
  Serious: Yes (Other)
  Sender: FDA-Public Use
  Company Number: PHEH2014US007059

PATIENT
  Sex: Male

DRUGS (10)
  1. EXELON PATCH [Suspect]
     Dosage: UNK UKN, UNK
     Route: 062
  2. EXELON PATCH [Suspect]
     Dosage: 9.5 MG, DAILY
     Route: 062
  3. EXELON PATCH [Suspect]
     Dosage: 9.5 MG, DAILY
     Route: 062
  4. GABAPENTIN [Suspect]
     Dosage: 1 DF, TID
  5. GABAPENTIN [Suspect]
     Dosage: UKN, PRN (AS REQUIRED)
  6. ACETAMINOPHEN W/HYDROCODONE [Suspect]
     Dosage: (5/500)
  7. NAMENDA [Concomitant]
     Dosage: 28 MG, QD
  8. CITALOPRAM [Concomitant]
     Dosage: 10 MG, QD
  9. FINASTERIDE [Concomitant]
     Dosage: 5 MG, QD
  10. PRAVASTATIN [Concomitant]
     Dosage: 20 MG, QD

REACTIONS (8)
  - B-cell lymphoma [Unknown]
  - Spinal column stenosis [Unknown]
  - Spinal deformity [Unknown]
  - Blindness unilateral [Unknown]
  - Hearing impaired [Unknown]
  - Hernia [Unknown]
  - Drug ineffective [Unknown]
  - Application site discolouration [Unknown]
